FAERS Safety Report 13740629 (Version 1)
Quarter: 2017Q3

REPORT INFORMATION
  Report Type: Spontaneous
  Country: US (occurrence: US)
  Receive Date: 20170710
  Receipt Date: 20170710
  Transmission Date: 20171127
  Serious: No
  Sender: FDA-Public Use
  Company Number: None

PATIENT
  Age: 32 Year
  Sex: Female

DRUGS (1)
  1. PAROXETINE. [Suspect]
     Active Substance: PAROXETINE
     Dosage: ?          OTHER DOSE:MG;?
     Route: 048
     Dates: start: 20170701, end: 20170710

REACTIONS (4)
  - Mental status changes [None]
  - Dyspepsia [None]
  - Feeling jittery [None]
  - Paraesthesia [None]

NARRATIVE: CASE EVENT DATE: 20170710
